FAERS Safety Report 10072596 (Version 6)
Quarter: 2015Q2

REPORT INFORMATION
  Report Type: Spontaneous
  Country: US (occurrence: US)
  Receive Date: 20140411
  Receipt Date: 20150615
  Transmission Date: 20150821
  Serious: Yes (Hospitalization, Disabling, Other)
  Sender: FDA-Public Use
  Company Number: US-009507513-1404USA001676

PATIENT
  Sex: Female

DRUGS (7)
  1. FOSAMAX [Suspect]
     Active Substance: ALENDRONATE SODIUM
     Dosage: 5 MG, UNK
     Route: 048
     Dates: start: 20010208, end: 20010911
  2. ACTONEL [Suspect]
     Active Substance: RISEDRONATE SODIUM
     Indication: OSTEOPENIA
     Dosage: 35 MG, QW
     Route: 048
     Dates: start: 200401, end: 201001
  3. CLARITIN [Concomitant]
     Active Substance: LORATADINE
     Indication: PRODUCT USED FOR UNKNOWN INDICATION
     Dosage: 5 MG, BID
     Route: 048
     Dates: start: 1985
  4. FOSAMAX [Suspect]
     Active Substance: ALENDRONATE SODIUM
     Dosage: 70 MG, QW
     Route: 048
     Dates: start: 20010919, end: 20040105
  5. FOSAMAX [Suspect]
     Active Substance: ALENDRONATE SODIUM
     Indication: OSTEOPENIA
     Dosage: 10 MG, QW
     Route: 048
     Dates: start: 200201, end: 200301
  6. VITAMINS (UNSPECIFIED) [Concomitant]
     Active Substance: VITAMINS
     Indication: PRODUCT USED FOR UNKNOWN INDICATION
     Dosage: 1 DF, QD
     Dates: start: 1985
  7. ACTONEL [Suspect]
     Active Substance: RISEDRONATE SODIUM
     Dosage: 150 MG, QM
     Route: 048
     Dates: start: 201002, end: 201112

REACTIONS (15)
  - Femur fracture [Unknown]
  - Anaemia postoperative [Unknown]
  - Tooth disorder [Unknown]
  - Diverticulitis [Unknown]
  - Thrombocytopenia [Unknown]
  - Gallbladder disorder [Unknown]
  - Gastrooesophageal reflux disease [Unknown]
  - Open reduction of fracture [Unknown]
  - Tooth disorder [Unknown]
  - Tooth disorder [Unknown]
  - Cholestasis [Unknown]
  - Constipation [Unknown]
  - Inappropriate schedule of drug administration [Recovered/Resolved]
  - Diverticulitis [Unknown]
  - Constipation [Unknown]

NARRATIVE: CASE EVENT DATE: 200201
